FAERS Safety Report 7120749-X (Version None)
Quarter: 2010Q4

REPORT INFORMATION
  Report Type: 
  Country: None (occurrence: None)
  Receive Date: 20101124
  Receipt Date: 20101117
  Transmission Date: 20110411
  Serious: Yes (Hospitalization)
  Sender: FDA-Public Use
  Company Number: RU-ELI_LILLY_AND_COMPANY-RU201011004685

PATIENT
  Sex: Male

DRUGS (4)
  1. NECITUMUMAB (11F8) (LY3012211) [Suspect]
     Indication: LUNG NEOPLASM MALIGNANT
     Dosage: 800 MG, UNK
     Dates: start: 20101102
  2. PEMETREXED [Suspect]
     Indication: LUNG NEOPLASM MALIGNANT
     Dosage: 950 MG, UNK
     Dates: start: 20101102
  3. CISPLATIN [Suspect]
     Indication: LUNG NEOPLASM MALIGNANT
     Dosage: 142 MG, UNK
     Dates: start: 20101102
  4. DEXAMETHASONE [Concomitant]
     Dates: start: 20101102

REACTIONS (1)
  - DRUG TOXICITY [None]
